FAERS Safety Report 9839870 (Version 1)
Quarter: 2014Q1

REPORT INFORMATION
  Report Type: Report from Study
  Country: BR (occurrence: BR)
  Receive Date: 20140124
  Receipt Date: 20140124
  Transmission Date: 20141002
  Serious: Yes (Other)
  Sender: FDA-Public Use
  Company Number: PHHY2014BR007182

PATIENT
  Sex: Female
  Weight: 53 kg

DRUGS (4)
  1. DIOVAN [Suspect]
     Indication: HYPERTENSION
     Dosage: 1 DF, (80 MG) AT NIGHT
     Route: 048
  2. DIOVAN [Suspect]
     Dosage: 1 DF, (80 MG) AT NIGHT
     Route: 048
  3. ATENOLOL [Concomitant]
     Indication: BLOOD PRESSURE ABNORMAL
     Dosage: 25 MG, UNK
  4. OMEGA 3 [Concomitant]
     Indication: BRAIN OEDEMA
     Dosage: 1000 MG, UNK
     Dates: start: 20130104

REACTIONS (5)
  - Cerebrovascular accident [Recovering/Resolving]
  - Eye disorder [Recovering/Resolving]
  - Mouth injury [Recovering/Resolving]
  - Limb deformity [Recovering/Resolving]
  - Speech disorder [Recovering/Resolving]
